FAERS Safety Report 9261035 (Version 1)
Quarter: 2013Q2

REPORT INFORMATION
  Report Type: Spontaneous
  Country: US (occurrence: US)
  Receive Date: 20130429
  Receipt Date: 20130429
  Transmission Date: 20140414
  Serious: No
  Sender: FDA-Public Use
  Company Number: US-AMGEN-USASP2012058019

PATIENT
  Age: 78 Year
  Sex: Female

DRUGS (1)
  1. SENSIPAR [Suspect]
     Indication: HYPERPARATHYROIDISM SECONDARY
     Dosage: 30 MG, 4 TIMES/WK (QOD)
     Route: 048
     Dates: start: 201207

REACTIONS (3)
  - Gastrointestinal disorder [Unknown]
  - Blood pressure decreased [Unknown]
  - Drug intolerance [Unknown]
